FAERS Safety Report 14200966 (Version 1)
Quarter: 2017Q4

REPORT INFORMATION
  Report Type: Spontaneous
  Country: US (occurrence: US)
  Receive Date: 20171117
  Receipt Date: 20171117
  Transmission Date: 20180321
  Serious: No
  Sender: FDA-Public Use
  Company Number: US-ASTRAZENECA-2017SF03685

PATIENT
  Sex: Female
  Weight: 81.6 kg

DRUGS (7)
  1. TUDORZA PRESSAIR [Suspect]
     Active Substance: ACLIDINIUM BROMIDE
     Indication: CHRONIC OBSTRUCTIVE PULMONARY DISEASE
     Route: 055
     Dates: start: 2015
  2. VITAMIN D [Concomitant]
     Active Substance: CHOLECALCIFEROL
  3. VITAMINS NOS [Concomitant]
     Active Substance: VITAMINS
  4. POTASSIUM [Concomitant]
     Active Substance: POTASSIUM
  5. CO-Q10 [Concomitant]
  6. TUDORZA PRESSAIR [Suspect]
     Active Substance: ACLIDINIUM BROMIDE
     Indication: CHRONIC OBSTRUCTIVE PULMONARY DISEASE
     Dosage: ONE PUFF BID
     Route: 055
  7. LEXAPRO [Concomitant]
     Active Substance: ESCITALOPRAM OXALATE

REACTIONS (7)
  - Product taste abnormal [Unknown]
  - Drug dose omission [Unknown]
  - Product quality issue [Not Recovered/Not Resolved]
  - Circumstance or information capable of leading to medication error [Not Recovered/Not Resolved]
  - Depressed mood [Unknown]
  - Off label use [Not Recovered/Not Resolved]
  - Device issue [Unknown]
